FAERS Safety Report 15687038 (Version 3)
Quarter: 2019Q1

REPORT INFORMATION
  Report Type: Spontaneous
  Country: US (occurrence: US)
  Receive Date: 20181204
  Receipt Date: 20190124
  Transmission Date: 20190417
  Serious: No
  Sender: FDA-Public Use
  Company Number: US-ASTRAZENECA-2018SF49228

PATIENT
  Sex: Male
  Weight: 90.7 kg

DRUGS (2)
  1. PULMICORT FLEXHALER [Suspect]
     Active Substance: BUDESONIDE
     Indication: ASTHMA
     Route: 055
     Dates: start: 201604
  2. FLUTICASONE. [Concomitant]
     Active Substance: FLUTICASONE
     Indication: HYPERSENSITIVITY
     Route: 045

REACTIONS (6)
  - Off label use [Unknown]
  - Device defective [Unknown]
  - Device failure [Unknown]
  - Drug effect incomplete [Unknown]
  - Incorrect dose administered by device [Unknown]
  - Dysphonia [Unknown]
